FAERS Safety Report 5981676-4 (Version None)
Quarter: 2008Q4

REPORT INFORMATION
  Report Type: 
  Country: None (occurrence: None)
  Receive Date: 20081205
  Receipt Date: 20081126
  Transmission Date: 20090506
  Serious: Yes (Hospitalization, Disabling, Other)
  Sender: FDA-Public Use
  Company Number: JP-ABBOTT-08P-087-0491159-00

PATIENT
  Age: 70 Year
  Sex: Male

DRUGS (9)
  1. LEUPROLIDE ACETATE [Suspect]
     Indication: PROSTATE CANCER STAGE IV
     Route: 058
     Dates: start: 20080507
  2. CANDESARTAN CILEXETIL [Concomitant]
     Indication: HYPERTENSION
     Route: 048
  3. LIMAPROST [Concomitant]
     Indication: PAIN
     Route: 048
     Dates: start: 20080801
  4. VERAPAMIL HYDROCHLORIDE [Concomitant]
     Indication: HYPERTENSION
     Route: 048
  5. KETOTIFEN FUMARATE [Concomitant]
     Indication: ASTHMA
     Route: 048
  6. THEOPHYLLINE [Concomitant]
     Indication: ASTHMA
     Route: 048
  7. AMBROXOL [Concomitant]
     Indication: GASTRITIS
     Route: 048
  8. CETOTIAMINE HYDROCHLORIDE [Concomitant]
     Indication: GASTRITIS
     Route: 048
  9. ALFACALCIDOL [Concomitant]
     Indication: HYPERTENSION
     Route: 048

REACTIONS (2)
  - DIPLOPIA [None]
  - TOLOSA-HUNT SYNDROME [None]
